FAERS Safety Report 20996826 (Version 1)
Quarter: 2022Q2

REPORT INFORMATION
  Report Type: Spontaneous
  Country: FR (occurrence: FR)
  Receive Date: 20220623
  Receipt Date: 20220623
  Transmission Date: 20220721
  Serious: Yes (Life-Threatening, Other)
  Sender: FDA-Public Use
  Company Number: None

PATIENT
  Age: 71 Year
  Sex: Female
  Weight: 46 kg

DRUGS (2)
  1. ATRACURIUM [Suspect]
     Active Substance: ATRACURIUM
     Indication: Renal transplant
     Dosage: -14H30 : 20 MG?-15H30 : 20 MG?-16H30 : 10 MG?-17H30 : 20 MG
     Route: 042
     Dates: start: 20220427, end: 20220427
  2. GRAFALON [Suspect]
     Active Substance: LAPINE T-LYMPHOCYTE IMMUNE GLOBULIN
     Indication: Renal transplant
     Route: 042
     Dates: start: 20220427, end: 20220427

REACTIONS (1)
  - Shock [Recovered/Resolved]

NARRATIVE: CASE EVENT DATE: 20220427
